FAERS Safety Report 16122485 (Version 1)
Quarter: 2019Q2

REPORT INFORMATION
  Report Type: Spontaneous
  Country: US (occurrence: US)
  Receive Date: 20190326
  Receipt Date: 20190326
  Transmission Date: 20190711
  Serious: Yes (Disabling)
  Sender: FDA-Public Use
  Company Number: None

PATIENT
  Age: 75 Year
  Sex: Female
  Weight: 75.15 kg

DRUGS (7)
  1. REPATHA [Suspect]
     Active Substance: EVOLOCUMAB
     Indication: BLOOD CHOLESTEROL INCREASED
     Dosage: ?          QUANTITY:1 INJECTION(S);OTHER FREQUENCY:EVERY TWO WEEKS;?
     Route: 030
     Dates: start: 20180105, end: 20190101
  2. LOSARTAN 50MG [Concomitant]
     Active Substance: LOSARTAN
  3. METFORNIN [Concomitant]
  4. RANITIDINE. [Concomitant]
     Active Substance: RANITIDINE
  5. INSULIN PEN [Concomitant]
     Active Substance: INSULIN NOS
  6. INSULIN PEN [Concomitant]
     Active Substance: INSULIN NOS
  7. ATENOLOL 25MG [Concomitant]
     Active Substance: ATENOLOL

REACTIONS (6)
  - Gait disturbance [None]
  - Cardiac disorder [None]
  - Back pain [None]
  - Loss of personal independence in daily activities [None]
  - Sleep disorder [None]
  - Pain [None]

NARRATIVE: CASE EVENT DATE: 20180601
